FAERS Safety Report 5325041-1 (Version None)
Quarter: 2007Q2

REPORT INFORMATION
  Report Type: 
  Country: None (occurrence: None)
  Receive Date: 20070515
  Receipt Date: 20070508
  Transmission Date: 20071010
  Serious: Yes (Other)
  Sender: FDA-Public Use
  Company Number: US-ASTRAZENECA-2007UW11052

PATIENT
  Age: 58 Year
  Sex: Female
  Weight: 63.5 kg

DRUGS (3)
  1. CRESTOR [Suspect]
     Route: 048
     Dates: start: 20030101
  2. ZETIA [Concomitant]
  3. SYNTHROID [Concomitant]

REACTIONS (3)
  - HEPATOCELLULAR DAMAGE [None]
  - LIVER TRANSPLANT [None]
  - MALAISE [None]
